FAERS Safety Report 8589726-6 (Version None)
Quarter: 2012Q3

REPORT INFORMATION
  Report Type: 
  Country: None (occurrence: None)
  Receive Date: 20120813
  Receipt Date: 20120731
  Transmission Date: 20120928
  Serious: Yes (Other)
  Sender: FDA-Public Use
  Company Number: FR-ROCHE-1095755

PATIENT
  Age: 69 Year
  Sex: Male

DRUGS (8)
  1. LEUCOVORIN CALCIUM [Concomitant]
     Dates: start: 20100101
  2. FLUOROURACIL [Suspect]
     Indication: COLORECTAL CANCER
     Dates: start: 20120308
  3. LEUCOVORIN CALCIUM [Concomitant]
     Dosage: 12 CYCLES
     Dates: start: 20100101
  4. LEUCOVORIN CALCIUM [Concomitant]
     Dates: start: 20080101
  5. IRINOTECAN HCL [Concomitant]
     Dates: start: 20080101
  6. LEUCOVORIN CALCIUM [Concomitant]
     Indication: COLON CANCER
     Dosage: 12 CYCLES
     Dates: start: 20080101
  7. AVASTIN [Suspect]
     Indication: COLORECTAL CANCER
     Dates: start: 20120308
  8. IRINOTECAN HCL [Concomitant]
     Dates: start: 20100101

REACTIONS (1)
  - RADIATION MUCOSITIS [None]
